FAERS Safety Report 5100896-4 (Version None)
Quarter: 2006Q3

REPORT INFORMATION
  Report Type: 
  Country: None (occurrence: None)
  Receive Date: 20060911
  Receipt Date: 20060622
  Transmission Date: 20061208
  Serious: Yes (Hospitalization)
  Sender: FDA-Public Use
  Company Number: US-AVENTIS-200619266GDDC

PATIENT
  Age: 74 Year
  Sex: Male
  Weight: 79.4 kg

DRUGS (9)
  1. OTHER ANTINEOPLASTIC AGENTS [Suspect]
     Indication: ADENOCARCINOMA
     Route: 042
     Dates: start: 20060612, end: 20060612
  2. DOCETAXEL [Suspect]
     Indication: ADENOCARCINOMA
     Route: 042
  3. CISPLATIN [Suspect]
     Indication: ADENOCARCINOMA
     Route: 042
  4. FLUOROURACIL [Suspect]
     Indication: ADENOCARCINOMA
     Route: 042
  5. FLOMAX [Concomitant]
     Indication: BENIGN PROSTATIC HYPERPLASIA
     Route: 048
     Dates: start: 20010101
  6. ZOCOR [Concomitant]
     Indication: HYPERCHOLESTEROLAEMIA
     Route: 048
     Dates: start: 20010101
  7. ZYRTEC [Concomitant]
     Indication: SEASONAL ALLERGY
     Route: 048
     Dates: start: 20040101
  8. IMODIUM [Concomitant]
     Indication: DIARRHOEA
     Route: 048
     Dates: start: 20060619
  9. ASTELIN [Concomitant]
     Indication: NASAL DRYNESS
     Dosage: DOSE: 2 PUFFS
     Route: 045
     Dates: start: 20060619

REACTIONS (7)
  - FEBRILE NEUTROPENIA [None]
  - HYPONATRAEMIA [None]
  - NEUTROPENIA [None]
  - PLATELET COUNT DECREASED [None]
  - PNEUMONIA [None]
  - PYREXIA [None]
  - WHITE BLOOD CELL COUNT DECREASED [None]
